FAERS Safety Report 7577636-2 (Version None)
Quarter: 2011Q2

REPORT INFORMATION
  Report Type: 
  Country: None (occurrence: None)
  Receive Date: 20110628
  Receipt Date: 20110623
  Transmission Date: 20111010
  Serious: Yes (Other)
  Sender: FDA-Public Use
  Company Number: CN-PFIZER INC-2011141517

PATIENT

DRUGS (3)
  1. PLAVIX [Concomitant]
     Dosage: UNK
  2. LIPITOR [Suspect]
     Dosage: UNK
     Route: 048
  3. HEPARIN CALCIUM [Concomitant]
     Dosage: UNK

REACTIONS (1)
  - WHITE BLOOD CELL COUNT DECREASED [None]
